FAERS Safety Report 11058615 (Version 1)
Quarter: 2015Q2

REPORT INFORMATION
  Report Type: Spontaneous
  Country: US (occurrence: None)
  Receive Date: 20150422
  Receipt Date: 20150422
  Transmission Date: 20150821
  Serious: No
  Sender: FDA-Public Use
  Company Number: None

PATIENT
  Age: 53 Year
  Sex: Female
  Weight: 64.86 kg

DRUGS (4)
  1. LOSARTAN [Concomitant]
     Active Substance: LOSARTAN
  2. VITAMIN D [Concomitant]
     Active Substance: CHOLECALCIFEROL
  3. RALOXIFENE HCL [Suspect]
     Active Substance: RALOXIFENE
     Indication: OSTEOPOROSIS
     Route: 048
     Dates: start: 20150101, end: 20150318
  4. CALCIUM [Concomitant]
     Active Substance: CALCIUM

REACTIONS (1)
  - Pain in jaw [None]

NARRATIVE: CASE EVENT DATE: 20150101
